FAERS Safety Report 4415007-8 (Version None)
Quarter: 2004Q3

REPORT INFORMATION
  Report Type: 
  Country: None (occurrence: None)
  Receive Date: 20040729
  Receipt Date: 20040726
  Transmission Date: 20050211
  Serious: Yes (Death)
  Sender: FDA-Public Use
  Company Number: US-JNJFOC-20040707015

PATIENT
  Age: 75 Year
  Sex: Female

DRUGS (18)
  1. LEVOFLOXACIN [Suspect]
     Indication: PNEUMONIA
     Dosage: INTRAVENOUS
     Route: 042
     Dates: start: 20031103, end: 20031104
  2. LEVOFLOXACIN [Suspect]
     Indication: PNEUMONIA
     Dosage: ORAL
     Route: 048
     Dates: start: 20031105, end: 20031110
  3. REGLAN [Concomitant]
  4. IMDUR [Concomitant]
  5. COLACE (DOCUSATE SODIUM) [Concomitant]
  6. TEGRETOL [Concomitant]
  7. LOTENSIN [Concomitant]
  8. TENORMIN [Concomitant]
  9. SOMA [Concomitant]
  10. TYLENOL [Concomitant]
  11. ZOFRAN [Concomitant]
  12. SOLU-MEDROL [Concomitant]
  13. ATROVENT [Concomitant]
  14. ALBUTEROL [Concomitant]
  15. RESTORIL [Concomitant]
  16. ADVAIR DISKUS [Concomitant]
  17. NAPROSYN [Concomitant]
  18. ACTIQ [Concomitant]

REACTIONS (1)
  - CARDIAC ARREST [None]
